FAERS Safety Report 25590796 (Version 1)
Quarter: 2025Q3

REPORT INFORMATION
  Report Type: Spontaneous
  Country: TR (occurrence: TR)
  Receive Date: 20250722
  Receipt Date: 20250722
  Transmission Date: 20251021
  Serious: Yes (Other)
  Sender: TEVA
  Company Number: TR-TEVA-VS-3353255

PATIENT
  Age: 80 Year
  Sex: Female

DRUGS (1)
  1. FENTANYL [Suspect]
     Active Substance: FENTANYL
     Indication: Analgesic intervention supportive therapy
     Route: 065

REACTIONS (3)
  - Drug hypersensitivity [Unknown]
  - Cardiovascular symptom [Unknown]
  - Respiratory symptom [Unknown]
